FAERS Safety Report 8499152-6 (Version None)
Quarter: 2012Q2

REPORT INFORMATION
  Report Type: 
  Country: None (occurrence: None)
  Receive Date: 20120405
  Receipt Date: 20100517
  Transmission Date: 20120825
  Serious: Yes (Life-Threatening, Hospitalization)
  Sender: FDA-Public Use
  Company Number: PHHY2010US31803

PATIENT
  Age: 65 Year
  Sex: Female
  Weight: 45.4 kg

DRUGS (17)
  1. CRESTOR [Concomitant]
  2. LISINOPRIL [Concomitant]
  3. LIBRIUM [Concomitant]
  4. HYDROCHLOROTHIAZIDE [Concomitant]
  5. ZANTAC [Concomitant]
  6. FIORICET [Concomitant]
  7. DEMEROL [Concomitant]
  8. VITAMIN E [Concomitant]
  9. RECLAST [Suspect]
     Indication: OSTEOPOROSIS
     Dosage: 5 MG/100 ML, ANNUAL INFUSION, INFUSION
     Dates: start: 20100422, end: 20100422
  10. ACE INHIBITORS AND DIURETICS (NO INGREDIENTS/SUBSTANCES) [Concomitant]
  11. ESTROPIPATE [Concomitant]
  12. LEVEMIR [Concomitant]
  13. INSULIN (INSULIN) [Concomitant]
  14. HUMALOG [Concomitant]
  15. AMBIEN [Concomitant]
  16. LOPRESSOR [Concomitant]
  17. GLIPIZIDE [Concomitant]

REACTIONS (6)
  - RENAL FAILURE [None]
  - CHROMATURIA [None]
  - LETHARGY [None]
  - URINE OUTPUT DECREASED [None]
  - NAUSEA [None]
  - VOMITING [None]
